FAERS Safety Report 22275253 (Version 2)
Quarter: 2023Q2

REPORT INFORMATION
  Report Type: Spontaneous
  Country: IN (occurrence: IN)
  Receive Date: 20230502
  Receipt Date: 20230508
  Transmission Date: 20230722
  Serious: Yes (Death, Other)
  Sender: FDA-Public Use
  Company Number: IN-002147023-NVSC2023IN100331

PATIENT
  Age: 76 Year
  Sex: Female

DRUGS (1)
  1. SACUBITRIL\VALSARTAN [Suspect]
     Active Substance: SACUBITRIL\VALSARTAN
     Indication: Product used for unknown indication
     Dosage: UNK UNK, QD (SACUBITRIL 24 MG AND VALSARTAN 26 MG) (ONCE A DAY AT NIGHT, HE WAS NOT SURE) (MFG DATE:
     Route: 048

REACTIONS (5)
  - Death [Fatal]
  - Cardiac dysfunction [Unknown]
  - Cardiac disorder [Unknown]
  - Inappropriate schedule of product administration [Unknown]
  - Cough [Unknown]

NARRATIVE: CASE EVENT DATE: 20220101
